FAERS Safety Report 21969298 (Version 3)
Quarter: 2025Q2

REPORT INFORMATION
  Report Type: Spontaneous
  Country: PT (occurrence: PT)
  Receive Date: 20230208
  Receipt Date: 20250501
  Transmission Date: 20250716
  Serious: Yes (Hospitalization)
  Sender: ORGANON
  Company Number: PT-GRUNENTHAL-2023-100523

PATIENT
  Age: 22 Year
  Sex: Female

DRUGS (5)
  1. SIMVASTATIN [Suspect]
     Active Substance: SIMVASTATIN
  2. METFORMIN [Suspect]
     Active Substance: METFORMIN HYDROCHLORIDE
  3. AMLODIPINE BESYLATE\PERINDOPRIL ERBUMINE [Suspect]
     Active Substance: AMLODIPINE BESYLATE\PERINDOPRIL ERBUMINE
  4. FENOFIBRATE [Suspect]
     Active Substance: FENOFIBRATE
  5. ESOMEPRAZOLE [Suspect]
     Active Substance: ESOMEPRAZOLE

REACTIONS (1)
  - Intentional product use issue [Unknown]
